FAERS Safety Report 11909432 (Version 2)
Quarter: 2016Q2

REPORT INFORMATION
  Report Type: Spontaneous
  Country: US (occurrence: US)
  Receive Date: 20160112
  Receipt Date: 20160425
  Transmission Date: 20160815
  Serious: No
  Sender: FDA-Public Use
  Company Number: US-TEVA-623193USA

PATIENT
  Age: 25 Year
  Sex: Female

DRUGS (1)
  1. ZECUITY [Suspect]
     Active Substance: SUMATRIPTAN SUCCINATE
     Route: 062
     Dates: start: 20151231, end: 20151231

REACTIONS (6)
  - Device leakage [Recovered/Resolved]
  - Application site erythema [Recovering/Resolving]
  - Device use error [Unknown]
  - Application site pain [Recovering/Resolving]
  - Application site discolouration [Unknown]
  - Underdose [Unknown]

NARRATIVE: CASE EVENT DATE: 20151231
